FAERS Safety Report 7936691-8 (Version None)
Quarter: 2011Q4

REPORT INFORMATION
  Report Type: 
  Country: None (occurrence: None)
  Receive Date: 20111123
  Receipt Date: 20111115
  Transmission Date: 20120403
  Serious: Yes (Hospitalization)
  Sender: FDA-Public Use
  Company Number: JP-PFIZER INC-2011277628

PATIENT
  Age: 80 Year
  Sex: Female

DRUGS (2)
  1. REVATIO [Suspect]
     Indication: PULMONARY HYPERTENSION
     Dosage: 60 MG, UNK
     Route: 048
  2. TRACLEER [Interacting]
     Indication: PULMONARY HYPERTENSION
     Dosage: 2 TABLETS DAILY
     Route: 048
     Dates: end: 20111101

REACTIONS (2)
  - DRUG INTERACTION [None]
  - GENERALISED OEDEMA [None]
